FAERS Safety Report 24919792 (Version 1)
Quarter: 2025Q1

REPORT INFORMATION
  Report Type: Spontaneous
  Country: CH (occurrence: CH)
  Receive Date: 20250204
  Receipt Date: 20250204
  Transmission Date: 20250409
  Serious: No
  Sender: EXELIXIS
  Company Number: CH-BRISTOL-MYERS SQUIBB COMPANY-2023-186296

PATIENT

DRUGS (31)
  1. CABOMETYX [Suspect]
     Active Substance: CABOZANTINIB S-MALATE
     Indication: Renal cancer metastatic
     Dates: start: 20231012
  2. CABOMETYX [Suspect]
     Active Substance: CABOZANTINIB S-MALATE
     Dates: start: 20231026
  3. CABOMETYX [Suspect]
     Active Substance: CABOZANTINIB S-MALATE
     Dates: start: 20231109
  4. CABOMETYX [Suspect]
     Active Substance: CABOZANTINIB S-MALATE
     Dates: start: 20231123
  5. CABOMETYX [Suspect]
     Active Substance: CABOZANTINIB S-MALATE
     Dates: start: 20231207
  6. CABOMETYX [Suspect]
     Active Substance: CABOZANTINIB S-MALATE
     Dates: start: 20231221
  7. OPDIVO [Suspect]
     Active Substance: NIVOLUMAB
     Indication: Renal cancer metastatic
     Dates: start: 20231012
  8. OPDIVO [Suspect]
     Active Substance: NIVOLUMAB
     Dates: start: 20231026
  9. OPDIVO [Suspect]
     Active Substance: NIVOLUMAB
     Dates: start: 20231109
  10. OPDIVO [Suspect]
     Active Substance: NIVOLUMAB
     Dates: start: 20231123
  11. OPDIVO [Suspect]
     Active Substance: NIVOLUMAB
     Dates: start: 20231207
  12. OPDIVO [Suspect]
     Active Substance: NIVOLUMAB
     Dates: start: 20231221
  13. OPDIVO [Suspect]
     Active Substance: NIVOLUMAB
     Dates: start: 20240118
  14. OPDIVO [Suspect]
     Active Substance: NIVOLUMAB
     Dates: start: 20240201
  15. OPDIVO [Suspect]
     Active Substance: NIVOLUMAB
     Dates: start: 20240215
  16. OPDIVO [Suspect]
     Active Substance: NIVOLUMAB
     Dates: start: 20240229
  17. OPDIVO [Suspect]
     Active Substance: NIVOLUMAB
     Dates: start: 20240314
  18. OPDIVO [Suspect]
     Active Substance: NIVOLUMAB
     Dates: start: 20240328
  19. OPDIVO [Suspect]
     Active Substance: NIVOLUMAB
     Dates: start: 20240411
  20. OPDIVO [Suspect]
     Active Substance: NIVOLUMAB
     Dates: start: 20240425
  21. OPDIVO [Suspect]
     Active Substance: NIVOLUMAB
     Dates: start: 20240104
  22. OPDIVO [Suspect]
     Active Substance: NIVOLUMAB
     Dates: start: 20240508
  23. OPDIVO [Suspect]
     Active Substance: NIVOLUMAB
     Dates: start: 20240523
  24. OPDIVO [Suspect]
     Active Substance: NIVOLUMAB
     Dates: start: 20240613
  25. OPDIVO [Suspect]
     Active Substance: NIVOLUMAB
     Dates: start: 20240627
  26. OPDIVO [Suspect]
     Active Substance: NIVOLUMAB
     Dates: start: 20240711
  27. OPDIVO [Suspect]
     Active Substance: NIVOLUMAB
     Dates: start: 20240725
  28. OPDIVO [Suspect]
     Active Substance: NIVOLUMAB
     Dates: start: 20240808
  29. OPDIVO [Suspect]
     Active Substance: NIVOLUMAB
     Dates: start: 20240905
  30. OPDIVO [Suspect]
     Active Substance: NIVOLUMAB
     Dates: start: 20241017
  31. OPDIVO [Suspect]
     Active Substance: NIVOLUMAB
     Dates: start: 20241031

REACTIONS (1)
  - Off label use [Unknown]
